FAERS Safety Report 20804391 (Version 3)
Quarter: 2022Q2

REPORT INFORMATION
  Report Type: Report from Study
  Country: BE (occurrence: BE)
  Receive Date: 20220509
  Receipt Date: 20220614
  Transmission Date: 20220721
  Serious: Yes (Life-Threatening, Hospitalization, Disabling, Other)
  Sender: FDA-Public Use
  Company Number: BE-PFIZER INC-202200231099

PATIENT
  Age: 80 Year
  Sex: Male
  Weight: 69 kg

DRUGS (17)
  1. TAFAMIDIS [Suspect]
     Active Substance: TAFAMIDIS
     Indication: Cardiac amyloidosis
     Dosage: 61 MG, DAILY, 12:00
     Route: 048
     Dates: start: 20201015, end: 202107
  2. ARANESP [Concomitant]
     Active Substance: DARBEPOETIN ALFA
     Dosage: 50 UG, ONCE EVERY TWO WEEKS, 08:00
     Route: 058
  3. BUMETANIDE [Concomitant]
     Active Substance: BUMETANIDE
     Dosage: 5 MG, 1X/DAY, 08:00
  4. BUMETANIDE [Concomitant]
     Active Substance: BUMETANIDE
     Dosage: 2.5 MG, 1X/DAY, 12:00
  5. CORDARONE [Concomitant]
     Active Substance: AMIODARONE HYDROCHLORIDE
     Dosage: 200 MG, 1X/DAY, 08:00
  6. DAFALGAN [Concomitant]
     Active Substance: ACETAMINOPHEN
     Dosage: 1 G, 2X/DAY, 8:00 18:00
  7. CHOLECALCIFEROL [Concomitant]
     Active Substance: CHOLECALCIFEROL
     Dosage: 25000 E, 2 TIMES A MONTH
  8. FERRICURE [IRON POLYSACCHARIDE COMPLEX] [Concomitant]
     Dosage: (CAPS (150 MG IRON)), 1 CAPSULE, 1/DAY, 07:00
  9. GLIQUIDONE [Concomitant]
     Active Substance: GLIQUIDONE
     Dosage: 30 MG, 1X/DAY, 08:00
  10. BECLOMETHASONE DIPROPIONATE\FORMOTEROL FUMARATE [Concomitant]
     Active Substance: BECLOMETHASONE DIPROPIONATE\FORMOTEROL FUMARATE
     Dosage: (AEROSOL 200-6 MCG/DAY 120 DOSES), 1 INHALER, 2/DAY, 08:00 18:00
     Route: 055
  11. LORMETAZEPAM EG [Concomitant]
     Dosage: 2 MG, 1X/DAY, 22:00
  12. PANTOMED [DEXPANTHENOL] [Concomitant]
     Dosage: 20 MG, 1X/DAY, 07:00
  13. RAMIPRIL [Concomitant]
     Active Substance: RAMIPRIL
     Dosage: 2.5 MG, 1X/DAY, 08:00
  14. TAMSULOSIN [Concomitant]
     Active Substance: TAMSULOSIN
     Dosage: 0.4 MG, 1X/DAY, 18:00, SLOW-RELEASE CAPSULE
  15. CYANOCOBALAMIN\FOLIC ACID\PYRIDOXINE HYDROCHLORIDE [Concomitant]
     Active Substance: CYANOCOBALAMIN\FOLIC ACID\PYRIDOXINE HYDROCHLORIDE
     Dosage: 1 TABLET, 1/DAY, 08:00
  16. XARELTO [Concomitant]
     Active Substance: RIVAROXABAN
     Dosage: 15 MG, 1/DAY, 08:00
  17. ALLOPURINOL [Concomitant]
     Active Substance: ALLOPURINOL
     Dosage: 100 MG, 1/DAY, 08:00

REACTIONS (5)
  - Prostatitis [Recovered/Resolved]
  - Septic shock [Recovered/Resolved]
  - Urinary tract infection [Recovered/Resolved]
  - Acute kidney injury [Recovered/Resolved]
  - Dysgeusia [Recovered/Resolved]

NARRATIVE: CASE EVENT DATE: 20210601
